FAERS Safety Report 5160740-6 (Version None)
Quarter: 2006Q4

REPORT INFORMATION
  Report Type: 
  Country: None (occurrence: None)
  Receive Date: 20061121
  Receipt Date: 20061113
  Transmission Date: 20070319
  Serious: Yes (Death, Hospitalization)
  Sender: FDA-Public Use
  Company Number: GXKR2006US07150

PATIENT
  Age: 37 Year
  Sex: Female

DRUGS (3)
  1. CLONAZEPAM [Suspect]
     Dosage: ORAL
     Route: 048
  2. DIPHENHYDRAMINE W/PARACETAMOL [Suspect]
     Dosage: ORAL
     Route: 048
  3. ZIPRASIDONE HCL [Suspect]

REACTIONS (12)
  - ALANINE AMINOTRANSFERASE INCREASED [None]
  - ASPARTATE AMINOTRANSFERASE INCREASED [None]
  - BLOOD PRESSURE DIASTOLIC DECREASED [None]
  - CARDIAC ARREST [None]
  - HEPATIC NECROSIS [None]
  - INTENTIONAL OVERDOSE [None]
  - LOSS OF CONSCIOUSNESS [None]
  - MYDRIASIS [None]
  - PUPIL FIXED [None]
  - TOXICOLOGIC TEST ABNORMAL [None]
  - TRANSAMINASES INCREASED [None]
  - VOMITING [None]
